FAERS Safety Report 16382508 (Version 1)
Quarter: 2019Q2

REPORT INFORMATION
  Report Type: Spontaneous
  Country: FR (occurrence: FR)
  Receive Date: 20190603
  Receipt Date: 20190603
  Transmission Date: 20190711
  Serious: Yes (Other)
  Sender: FDA-Public Use
  Company Number: FR-ASTELLAS-2019US021531

PATIENT
  Age: 87 Year
  Sex: Male

DRUGS (1)
  1. XTANDI [Suspect]
     Active Substance: ENZALUTAMIDE
     Indication: PROSTATE CANCER
     Dosage: 4 DF, ONCE DAILY (IN MORNING)
     Route: 048
     Dates: start: 201905

REACTIONS (4)
  - Wrong technique in product usage process [Unknown]
  - General physical health deterioration [Not Recovered/Not Resolved]
  - Product use complaint [Not Recovered/Not Resolved]
  - Choking [Not Recovered/Not Resolved]
